FAERS Safety Report 8306006-4 (Version None)
Quarter: 2012Q1

REPORT INFORMATION
  Report Type: 
  Country: None (occurrence: None)
  Receive Date: 20120326
  Receipt Date: 20110616
  Transmission Date: 20120608
  Serious: Yes (Disabling)
  Sender: FDA-Public Use
  Company Number: PHHY2011US41864

PATIENT
  Age: 44 Year
  Sex: Female

DRUGS (7)
  1. HYDROQUINONE (HYDROQUINONE ) [Concomitant]
  2. K+ (POTASSIUM CHLORIDE) [Concomitant]
  3. TASIGNA [Suspect]
     Dosage: 400 MG, BID, ORAL
     Route: 048
     Dates: start: 20090619
  4. DIAZEPAM [Concomitant]
  5. FUROSEMIDE [Concomitant]
  6. ALLOPURINOL [Concomitant]
  7. BETAPROLINE [Concomitant]

REACTIONS (2)
  - DIZZINESS [None]
  - VERTIGO [None]
